FAERS Safety Report 21969918 (Version 1)
Quarter: 2023Q1

REPORT INFORMATION
  Report Type: Report from Study
  Country: BR (occurrence: BR)
  Receive Date: 20230208
  Receipt Date: 20230208
  Transmission Date: 20230418
  Serious: Yes (Hospitalization)
  Sender: FDA-Public Use
  Company Number: BR-CELLTRION INC.-2023BR002622

PATIENT

DRUGS (4)
  1. INFLIXIMAB [Suspect]
     Active Substance: INFLIXIMAB
     Indication: Rheumatoid arthritis
     Dosage: 8 AMPOULES, EVERY 8 WEEKS
     Route: 042
     Dates: start: 20221124
  2. INFLIXIMAB [Suspect]
     Active Substance: INFLIXIMAB
     Indication: Osteoarthritis
  3. PREDNISONE [Concomitant]
     Active Substance: PREDNISONE
     Indication: Arthritis
     Dosage: 2 CAPSULES PER DAY, STARTED: 3 YEARS AGO
     Route: 048
  4. FOLIC ACID [Concomitant]
     Active Substance: FOLIC ACID
     Indication: Arthritis
     Dosage: 1 CAPSULE EVERY SUNDAY, STARTED: 3 YEARS AGO
     Route: 048

REACTIONS (5)
  - Giant cell arteritis [Recovering/Resolving]
  - Urinary tract infection [Recovering/Resolving]
  - Malaise [Unknown]
  - Headache [Unknown]
  - Intentional dose omission [Unknown]
